FAERS Safety Report 6772676-5 (Version None)
Quarter: 2010Q2

REPORT INFORMATION
  Report Type: 
  Country: None (occurrence: None)
  Receive Date: 20100616
  Receipt Date: 20100120
  Transmission Date: 20101027
  Serious: No
  Sender: FDA-Public Use
  Company Number: US-ASTRAZENECA-2010SE02587

PATIENT
  Sex: Female
  Weight: 45.8 kg

DRUGS (2)
  1. PULMICORT FLEXHALER [Suspect]
     Indication: CHRONIC OBSTRUCTIVE PULMONARY DISEASE
     Dosage: TOTAL DAILY DOSE: 360 UG
     Route: 055
     Dates: start: 20091223
  2. SPIRIVA [Concomitant]

REACTIONS (2)
  - DYSPHONIA [None]
  - PNEUMONIA [None]
